FAERS Safety Report 9377785 (Version 1)
Quarter: 2013Q3

REPORT INFORMATION
  Report Type: Spontaneous
  Country: US (occurrence: US)
  Receive Date: 20130701
  Receipt Date: 20130701
  Transmission Date: 20140515
  Serious: No
  Sender: FDA-Public Use
  Company Number: US-GLAXOSMITHKLINE-A0995633A

PATIENT
  Age: 36 Year
  Sex: Female

DRUGS (3)
  1. SUMATRIPTAN SUCCINATE [Suspect]
     Indication: MIGRAINE
     Dosage: 10MG AS REQUIRED
     Route: 048
  2. TOPAMAX [Concomitant]
  3. BIRTH CONTROL PILLS [Concomitant]

REACTIONS (2)
  - Fatigue [Unknown]
  - Drug ineffective [Unknown]
